FAERS Safety Report 5107515-1 (Version None)
Quarter: 2006Q3

REPORT INFORMATION
  Report Type: 
  Country: None (occurrence: None)
  Receive Date: 20060913
  Receipt Date: 20060913
  Transmission Date: 20061208
  Serious: Yes (Hospitalization)
  Sender: FDA-Public Use
  Company Number: None

PATIENT
  Age: 69 Year
  Sex: Male
  Weight: 63.9572 kg

DRUGS (2)
  1. IRINOTECAN HCL [Suspect]
     Indication: NEOPLASM MALIGNANT
     Dosage: 50 MG/M2 D1,8,22,29 Q 6WKS IV
     Route: 042
     Dates: start: 20060503, end: 20060728
  2. CISPLATIN [Suspect]
     Indication: NEOPLASM MALIGNANT
     Dosage: 30 MG/M2 D1,8, 22,29 Q 6 WKS IV
     Route: 042
     Dates: start: 20060503, end: 20060728

REACTIONS (4)
  - DYSPHASIA [None]
  - MALIGNANT NEOPLASM PROGRESSION [None]
  - PERFORMANCE STATUS DECREASED [None]
  - PNEUMONIA ASPIRATION [None]
